FAERS Safety Report 8159317 (Version 2)
Quarter: 2013Q4

REPORT INFORMATION
  Report Type: Report from Study
  Country: CA (occurrence: CA)
  Receive Date: 20110928
  Receipt Date: 20131008
  Transmission Date: 20140711
  Serious: No
  Sender: FDA-Public Use
  Company Number: PHHY2011CA84129

PATIENT
  Age: 59 Year
  Sex: Female

DRUGS (2)
  1. ACLASTA [Suspect]
     Indication: OSTEOPOROSIS
     Dosage: 5 MG, UNK
     Route: 042
     Dates: start: 20110919
  2. ACLASTA [Suspect]
     Dosage: 5 MG, UNK
     Route: 042
     Dates: start: 20121026

REACTIONS (16)
  - Hypophagia [Unknown]
  - Dysstasia [Unknown]
  - Migraine [Unknown]
  - Abdominal discomfort [Unknown]
  - Pyrexia [Recovered/Resolved]
  - Headache [Unknown]
  - Myalgia [Unknown]
  - Tremor [Unknown]
  - Somnolence [Unknown]
  - Chills [Unknown]
  - Insomnia [Unknown]
  - Pain [Unknown]
  - Asthenia [Unknown]
  - Dizziness [Unknown]
  - Malaise [Unknown]
  - Fatigue [Unknown]
